FAERS Safety Report 10711641 (Version 2)
Quarter: 2015Q1

REPORT INFORMATION
  Report Type: Spontaneous
  Country: US (occurrence: US)
  Receive Date: 20150114
  Receipt Date: 20150115
  Transmission Date: 20150721
  Serious: Yes (Death)
  Sender: FDA-Public Use
  Company Number: US-PFIZER INC-2015008412

PATIENT
  Age: 42 Year
  Sex: Female

DRUGS (10)
  1. DEXTROMETHORPHAN HBR [Suspect]
     Active Substance: DEXTROMETHORPHAN HYDROBROMIDE
  2. CITALOPRAM [Suspect]
     Active Substance: CITALOPRAM HYDROBROMIDE
  3. DOXYLAMINE [Suspect]
     Active Substance: DOXYLAMINE
  4. DIPHENHYDRAMINE [Suspect]
     Active Substance: DIPHENHYDRAMINE
  5. ACETAMINOPHEN. [Suspect]
     Active Substance: ACETAMINOPHEN
  6. BUSPIRONE [Suspect]
     Active Substance: BUSPIRONE HYDROCHLORIDE
  7. DOXEPIN HCL [Suspect]
     Active Substance: DOXEPIN HYDROCHLORIDE
  8. FENTANYL. [Suspect]
     Active Substance: FENTANYL
  9. QUETIAPINE [Suspect]
     Active Substance: QUETIAPINE
  10. ISOPROPANOL [Suspect]
     Active Substance: ISOPROPANOLAMINE

REACTIONS (1)
  - Drug abuse [Fatal]

NARRATIVE: CASE EVENT DATE: 2013
